FAERS Safety Report 6662608-2 (Version None)
Quarter: 2010Q1

REPORT INFORMATION
  Report Type: 
  Country: None (occurrence: None)
  Receive Date: 20100329
  Receipt Date: 20100317
  Transmission Date: 20100710
  Serious: Yes (Other)
  Sender: FDA-Public Use
  Company Number: AMI0019319

PATIENT
  Age: 60 Year
  Sex: Male

DRUGS (2)
  1. TIMOPTIC-XE [Suspect]
     Indication: GLAUCOMA
     Dosage: 1 DROP QD, OD-OS - 046
     Dates: start: 20100119, end: 20100226
  2. XALATAN [Suspect]
     Indication: GLAUCOMA
     Dosage: 1 DROP QD, OD-OS - 046
     Dates: start: 20100119, end: 20100226

REACTIONS (2)
  - KERATITIS HERPETIC [None]
  - ULCERATIVE KERATITIS [None]
